FAERS Safety Report 6935676-8 (Version None)
Quarter: 2010Q3

REPORT INFORMATION
  Report Type: 
  Country: None (occurrence: None)
  Receive Date: 20100823
  Receipt Date: 20100813
  Transmission Date: 20110219
  Serious: Yes (Hospitalization)
  Sender: FDA-Public Use
  Company Number: GB-JNJFOC-20100806182

PATIENT
  Sex: Male
  Weight: 1.48 kg

DRUGS (8)
  1. VERMOX [Suspect]
     Indication: DRUG EXPOSURE DURING PREGNANCY
     Route: 064
  2. DICLOFENAC [Concomitant]
     Indication: DRUG EXPOSURE DURING PREGNANCY
     Route: 064
  3. ENTONOX [Concomitant]
     Indication: DRUG EXPOSURE DURING PREGNANCY
     Route: 064
  4. CYCLIZINE [Concomitant]
     Indication: DRUG EXPOSURE DURING PREGNANCY
     Route: 064
  5. CLOTRIMAZOLE [Concomitant]
     Indication: DRUG EXPOSURE DURING PREGNANCY
     Route: 064
  6. CLOTRIMAZOLE [Concomitant]
     Route: 064
  7. CLOTRIMAZOLE [Concomitant]
     Route: 064
  8. CLOTRIMAZOLE [Concomitant]
     Route: 064

REACTIONS (1)
  - GRUNTING [None]
